FAERS Safety Report 24991885 (Version 1)
Quarter: 2025Q1

REPORT INFORMATION
  Report Type: Spontaneous
  Country: US (occurrence: None)
  Receive Date: 20250220
  Receipt Date: 20250220
  Transmission Date: 20250409
  Serious: Yes (Other)
  Sender: FDA-CTU
  Company Number: None

PATIENT
  Age: 40 Year
  Sex: Female
  Weight: 108.9 kg

DRUGS (20)
  1. NEFFY [Suspect]
     Active Substance: EPINEPHRINE
     Indication: Anaphylactic reaction
     Route: 055
     Dates: start: 20250211, end: 20250211
  2. LEVOTHYROXINE [Concomitant]
     Active Substance: LEVOTHYROXINE
  3. Epi Pens [Concomitant]
  4. DICYCLOMINE [Concomitant]
     Active Substance: DICYCLOMINE HYDROCHLORIDE
  5. ALLEGRA [Concomitant]
     Active Substance: FEXOFENADINE HYDROCHLORIDE
  6. Clartin [Concomitant]
  7. PEPCID [Concomitant]
     Active Substance: FAMOTIDINE
  8. PROGESTERONE [Concomitant]
     Active Substance: PROGESTERONE
  9. ELM [Concomitant]
     Active Substance: ELM
  10. AZADIRACHTA INDICA BARK [Concomitant]
     Active Substance: AZADIRACHTA INDICA BARK
  11. VITAMIN C [Concomitant]
     Active Substance: ASCORBIC ACID
  12. SELENIUM [Concomitant]
     Active Substance: SELENIUM
  13. Magnanese [Concomitant]
  14. Magnesium Cirate [Concomitant]
  15. TAURINE [Concomitant]
     Active Substance: TAURINE
  16. Blueberry Extract [Concomitant]
  17. Monolaurin [Concomitant]
  18. Trevinol [Concomitant]
  19. ARTICHOKE [Concomitant]
     Active Substance: ARTICHOKE
  20. POTASSIUM [Concomitant]
     Active Substance: POTASSIUM

REACTIONS (11)
  - Hypoaesthesia [None]
  - Swollen tongue [None]
  - Dyspnoea [None]
  - Dysphagia [None]
  - Nasal discomfort [None]
  - Oropharyngeal pain [None]
  - Ear discomfort [None]
  - Eye irritation [None]
  - Crying [None]
  - Arthralgia [None]
  - Arthralgia [None]

NARRATIVE: CASE EVENT DATE: 20250211
